FAERS Safety Report 23623065 (Version 3)
Quarter: 2024Q2

REPORT INFORMATION
  Report Type: Spontaneous
  Country: FR (occurrence: FR)
  Receive Date: 20240312
  Receipt Date: 20240425
  Transmission Date: 20240715
  Serious: Yes (Other)
  Sender: FDA-Public Use
  Company Number: None

PATIENT
  Age: 28 Year
  Sex: Female

DRUGS (8)
  1. OLANZAPINE [Suspect]
     Active Substance: OLANZAPINE
     Indication: Acute psychosis
     Route: 048
     Dates: start: 20240119, end: 20240206
  2. SUCCINYLCHOLINE [Suspect]
     Active Substance: SUCCINYLCHOLINE
     Indication: Electroconvulsive therapy
     Route: 051
     Dates: start: 20240202, end: 20240202
  3. SUCCINYLCHOLINE [Suspect]
     Active Substance: SUCCINYLCHOLINE
     Indication: Electroconvulsive therapy
     Route: 051
     Dates: start: 20240126, end: 20240126
  4. SUCCINYLCHOLINE [Suspect]
     Active Substance: SUCCINYLCHOLINE
     Indication: Electroconvulsive therapy
     Route: 051
     Dates: start: 20240124, end: 20240124
  5. SUCCINYLCHOLINE [Suspect]
     Active Substance: SUCCINYLCHOLINE
     Indication: Electroconvulsive therapy
     Route: 051
     Dates: start: 20240129, end: 20240129
  6. CHLORPROMAZINE [Suspect]
     Active Substance: CHLORPROMAZINE
     Indication: Acute psychosis
     Route: 048
     Dates: start: 20240119, end: 20240206
  7. CHLORPROMAZINE [Suspect]
     Active Substance: CHLORPROMAZINE
     Indication: Acute psychosis
     Route: 048
     Dates: start: 202401, end: 20240206
  8. POLYETHYLENE GLYCOL 4000 [Suspect]
     Active Substance: POLYETHYLENE GLYCOL 4000
     Indication: Electroconvulsive therapy
     Route: 048
     Dates: start: 20240124, end: 20240206

REACTIONS (1)
  - Toxic skin eruption [Not Recovered/Not Resolved]

NARRATIVE: CASE EVENT DATE: 20240125
